FAERS Safety Report 7722641-6 (Version None)
Quarter: 2011Q3

REPORT INFORMATION
  Report Type: 
  Country: None (occurrence: None)
  Receive Date: 20110831
  Receipt Date: 20110826
  Transmission Date: 20111222
  Serious: Yes (Disabling)
  Sender: FDA-Public Use
  Company Number: US-MERCK-1108USA01463

PATIENT
  Age: 65 Year
  Sex: Female

DRUGS (3)
  1. SINEMET CR [Suspect]
     Indication: PARKINSON'S DISEASE
     Route: 048
     Dates: start: 20110101, end: 20110801
  2. GABAPENTIN [Concomitant]
     Route: 065
  3. SINEMET [Suspect]
     Indication: PARKINSON'S DISEASE
     Route: 048
     Dates: start: 20110501, end: 20110101

REACTIONS (6)
  - MOVEMENT DISORDER [None]
  - DYSPHONIA [None]
  - BACK PAIN [None]
  - PERONEAL NERVE PALSY [None]
  - TREMOR [None]
  - DRUG INEFFECTIVE [None]
